FAERS Safety Report 4699049-3 (Version None)
Quarter: 2005Q2

REPORT INFORMATION
  Report Type: 
  Country: None (occurrence: None)
  Receive Date: 20050622
  Receipt Date: 20050622
  Transmission Date: 20051028
  Serious: Yes (Disabling)
  Sender: FDA-Public Use
  Company Number: None

PATIENT
  Age: 74 Year
  Sex: Female
  Weight: 108.8633 kg

DRUGS (2)
  1. LISINOPRIL [Suspect]
     Indication: BLOOD PRESSURE INCREASED
     Dosage: 40 MG/QD/PO
     Route: 048
     Dates: start: 20040501
  2. LISINOPRIL [Suspect]
     Indication: BLOOD PRESSURE INCREASED
     Dosage: 40 MG/QD/PO
     Route: 048
     Dates: start: 20041223

REACTIONS (11)
  - ABASIA [None]
  - ACTIVITIES OF DAILY LIVING IMPAIRED [None]
  - ASTHENIA [None]
  - CARDIAC PACEMAKER INSERTION [None]
  - DIFFICULTY IN WALKING [None]
  - DYSSTASIA [None]
  - EPISTAXIS [None]
  - IMPAIRED DRIVING ABILITY [None]
  - MOBILITY DECREASED [None]
  - MYALGIA [None]
  - PETECHIAE [None]
